FAERS Safety Report 8496689-0 (Version None)
Quarter: 2012Q3

REPORT INFORMATION
  Report Type: 
  Country: None (occurrence: None)
  Receive Date: 20120709
  Receipt Date: 20120629
  Transmission Date: 20120928
  Serious: Yes (Hospitalization, Other)
  Sender: FDA-Public Use
  Company Number: US-NAPPMUNDI-USA-2012-0088221

PATIENT
  Sex: Male
  Weight: 80.272 kg

DRUGS (2)
  1. FENTANYL [Concomitant]
     Indication: BACK DISORDER
     Dosage: 100 MCG, Q72H
     Route: 062
     Dates: start: 20110809, end: 20120316
  2. DILAUDID [Suspect]
     Indication: BACK PAIN
     Dosage: 36 MG, SEE TEXT
     Route: 048
     Dates: start: 20120309, end: 20120309

REACTIONS (2)
  - INCORRECT DOSE ADMINISTERED [None]
  - TOXIC ENCEPHALOPATHY [None]
